FAERS Safety Report 15604915 (Version 1)
Quarter: 2018Q4

REPORT INFORMATION
  Report Type: Report from Study
  Country: None (occurrence: US)
  Receive Date: 20181111
  Receipt Date: 20181111
  Transmission Date: 20190205
  Serious: Yes (Hospitalization, Other)
  Sender: FDA-Public Use
  Company Number: US-ABBVIE-18K-163-2540587-00

PATIENT
  Age: 64 Year
  Sex: Male
  Weight: 64.01 kg

DRUGS (1)
  1. HUMIRA [Suspect]
     Active Substance: ADALIMUMAB
     Indication: CROHN^S DISEASE
     Route: 058
     Dates: start: 2008, end: 201710

REACTIONS (8)
  - Procedural pain [Recovered/Resolved]
  - Oesophageal obstruction [Recovered/Resolved]
  - Dysarthria [Recovered/Resolved]
  - Bladder injury [Recovered/Resolved]
  - Colon injury [Recovered/Resolved]
  - Kidney infection [Recovered/Resolved]
  - Cerebrovascular accident [Recovered/Resolved]
  - Renal failure [Recovered/Resolved]

NARRATIVE: CASE EVENT DATE: 2012
